FAERS Safety Report 13406873 (Version 1)
Quarter: 2017Q2

REPORT INFORMATION
  Report Type: Spontaneous
  Country: IT (occurrence: IT)
  Receive Date: 20170405
  Receipt Date: 20170405
  Transmission Date: 20170830
  Serious: Yes (Other)
  Sender: FDA-Public Use
  Company Number: IT-PFIZER INC-2017143228

PATIENT
  Age: 75 Year
  Sex: Male

DRUGS (1)
  1. XALKORI [Suspect]
     Active Substance: CRIZOTINIB
     Indication: LUNG NEOPLASM
     Dosage: 500 MG, DAILY
     Route: 048
     Dates: start: 20161103, end: 20161223

REACTIONS (3)
  - Electrolyte imbalance [Recovered/Resolved]
  - Diverticulitis [Recovered/Resolved]
  - Atrial flutter [Recovered/Resolved]

NARRATIVE: CASE EVENT DATE: 20161220
